FAERS Safety Report 5761246-3 (Version None)
Quarter: 2008Q2

REPORT INFORMATION
  Report Type: 
  Country: None (occurrence: None)
  Receive Date: 20080606
  Receipt Date: 20080604
  Transmission Date: 20081010
  Serious: Yes (Other)
  Sender: FDA-Public Use
  Company Number: US-JNJFOC-20080506149

PATIENT
  Age: 45 Year
  Sex: Female

DRUGS (4)
  1. FENTANYL TRANSDERMAL SYSTEM [Suspect]
     Indication: PAIN
     Dosage: 5 X 100UG/HR PATCHES
     Route: 062
  2. HYDROMORPHONE HCL [Suspect]
     Indication: PAIN
     Route: 042
  3. GABAPENTIN [Concomitant]
  4. LORAZEPAM [Concomitant]
     Dosage: 1-2 MG AS NEEDED
     Route: 048

REACTIONS (2)
  - DRUG TOLERANCE [None]
  - HYPERAESTHESIA [None]
